FAERS Safety Report 23301580 (Version 1)
Quarter: 2023Q4

REPORT INFORMATION
  Report Type: Report from Study
  Country: US (occurrence: US)
  Receive Date: 20231215
  Receipt Date: 20231215
  Transmission Date: 20240109
  Serious: No
  Sender: FDA-Public Use
  Company Number: US-ALXN-A202306700

PATIENT
  Sex: Male

DRUGS (4)
  1. ULTOMIRIS [Suspect]
     Active Substance: RAVULIZUMAB-CWVZ
     Indication: Myasthenia gravis
     Dosage: UNK
     Route: 065
  2. ULTOMIRIS [Suspect]
     Active Substance: RAVULIZUMAB-CWVZ
     Dosage: UNK
     Route: 042
  3. PREDNISONE [Concomitant]
     Active Substance: PREDNISONE
     Indication: Product used for unknown indication
     Dosage: UNK
     Route: 065
  4. MESTINON [Concomitant]
     Active Substance: PYRIDOSTIGMINE BROMIDE
     Indication: Product used for unknown indication
     Dosage: UNK
     Route: 065

REACTIONS (12)
  - Therapy non-responder [Unknown]
  - Musculoskeletal stiffness [Unknown]
  - Confusional state [Unknown]
  - Balance disorder [Unknown]
  - Gait disturbance [Unknown]
  - Jaw disorder [Unknown]
  - Trismus [Unknown]
  - Diplopia [Unknown]
  - Muscle spasms [Unknown]
  - Fatigue [Unknown]
  - Back pain [Unknown]
  - Eyelid ptosis [Unknown]
